FAERS Safety Report 7220401-6 (Version None)
Quarter: 2011Q1

REPORT INFORMATION
  Report Type: 
  Country: None (occurrence: None)
  Receive Date: 20110111
  Receipt Date: 20101227
  Transmission Date: 20110831
  Serious: Yes (Hospitalization)
  Sender: FDA-Public Use
  Company Number: JP-AMGEN-JPNCT2011001533

PATIENT

DRUGS (13)
  1. CALCIUM LEVOFOLINATE [Suspect]
     Indication: COLORECTAL CANCER
     Route: 041
     Dates: start: 20100818
  2. OXALIPLATIN [Suspect]
     Indication: COLORECTAL CANCER
     Route: 041
     Dates: start: 20100818
  3. MYSER OINTMENT [Concomitant]
     Route: 062
  4. PANITUMUMAB [Suspect]
     Indication: COLORECTAL CANCER
     Dosage: UNK
     Route: 041
     Dates: start: 20100818
  5. KERATINAMIN OINTMENT [Concomitant]
     Route: 062
  6. FLUOROURACIL [Suspect]
     Route: 041
     Dates: start: 20100818
  7. ALOXI [Concomitant]
     Route: 042
  8. DEXAMETHASONE ACETATE [Concomitant]
     Route: 042
  9. CALCICOL [Concomitant]
     Route: 042
  10. FLUOROURACIL [Suspect]
     Indication: COLORECTAL CANCER
     Dosage: UNK UNK, Q2WK
     Dates: start: 20100818
  11. MAGNESIUM SULFATE [Concomitant]
     Route: 042
  12. DEXALTIN [Concomitant]
     Route: 049
  13. LOCOID CREAM [Concomitant]
     Route: 062

REACTIONS (4)
  - DERMATITIS ACNEIFORM [None]
  - DEVICE RELATED INFECTION [None]
  - STOMATITIS [None]
  - FEBRILE NEUTROPENIA [None]
